FAERS Safety Report 4478469-6 (Version None)
Quarter: 2004Q4

REPORT INFORMATION
  Report Type: 
  Country: None (occurrence: None)
  Receive Date: 20041018
  Receipt Date: 20041018
  Transmission Date: 20050328
  Serious: Yes (Hospitalization)
  Sender: FDA-Public Use
  Company Number: None

PATIENT
  Age: 40 Year
  Sex: Male
  Weight: 72.5755 kg

DRUGS (2)
  1. MERCAPTOPURINE [Suspect]
     Indication: CROHN'S DISEASE
     Dosage: 75 MG Q DAY ORAL
     Route: 048
     Dates: start: 20040930, end: 20041002
  2. MERCAPTOPURINE [Suspect]
     Indication: CROHN'S DISEASE
     Dosage: 75 MG Q DAY ORAL
     Route: 048
     Dates: start: 20041010, end: 20041010

REACTIONS (15)
  - ANGIONEUROTIC OEDEMA [None]
  - BACK PAIN [None]
  - HEART RATE INCREASED [None]
  - HEAT RASH [None]
  - HYPERSENSITIVITY [None]
  - LYMPHADENOPATHY [None]
  - MOVEMENT DISORDER [None]
  - MUSCLE SPASMS [None]
  - MUSCULOSKELETAL STIFFNESS [None]
  - PYREXIA [None]
  - RASH MACULO-PAPULAR [None]
  - SERUM SICKNESS [None]
  - UPPER RESPIRATORY TRACT INFECTION [None]
  - VOMITING [None]
  - WHITE BLOOD CELLS URINE POSITIVE [None]
